FAERS Safety Report 20867042 (Version 2)
Quarter: 2022Q3

REPORT INFORMATION
  Report Type: Spontaneous
  Country: ES (occurrence: ES)
  Receive Date: 20220524
  Receipt Date: 20220707
  Transmission Date: 20221027
  Serious: Yes (Hospitalization, Other)
  Sender: FDA-Public Use
  Company Number: ES-GLAXOSMITHKLINE-ESCH2022GSK016119

PATIENT
  Age: 72 Year
  Sex: Female

DRUGS (32)
  1. ZOLEDRONIC ACID [Suspect]
     Active Substance: ZOLEDRONIC ACID
     Indication: Bone lesion
     Dosage: 3.5 MILLIGRAM (SINGLE)
     Route: 042
     Dates: start: 20220422, end: 20220422
  2. BORTEZOMIB [Suspect]
     Active Substance: BORTEZOMIB
     Indication: Plasma cell myeloma
     Dosage: 1.3 MILLIGRAM/SQ. METER,  (1,4,8,11 OF 21 DAY CYCLE)
     Route: 058
  3. IBUPROFEN [Suspect]
     Active Substance: IBUPROFEN
     Indication: Back pain
     Dosage: 600 MILLIGRAM, PRN
     Route: 048
  4. IBUPROFEN [Suspect]
     Active Substance: IBUPROFEN
     Indication: Arthralgia
     Dosage: 600 MILLIGRAM, PRN
     Route: 048
     Dates: start: 2022
  5. POMALIDOMIDE [Suspect]
     Active Substance: POMALIDOMIDE
     Indication: Plasma cell myeloma
     Dosage: 4 MILLIGRAM, 1-21 DAY (28 DAY CYCLE)
     Route: 048
     Dates: start: 20220128, end: 20220427
  6. POMALIDOMIDE [Suspect]
     Active Substance: POMALIDOMIDE
     Dosage: 4 MILLIGRAM, 1-21 DAY (28 DAY CYCLE)
     Route: 048
     Dates: end: 20220426
  7. DEXAMETHASONE [Suspect]
     Active Substance: DEXAMETHASONE
     Indication: Plasma cell myeloma
     Dosage: 40 MILLIGRAM, (1,8,15, 22 OF 28 DAY CYCLE)
     Route: 048
     Dates: start: 20220128, end: 20220426
  8. SERTRALINE [Concomitant]
     Active Substance: SERTRALINE HYDROCHLORIDE
     Indication: Mixed anxiety and depressive disorder
     Dosage: 100 MILLIGRAM, QD
     Route: 048
     Dates: start: 202103
  9. CALCIUM [Concomitant]
     Active Substance: CALCIUM
     Indication: Osteoporosis
     Dosage: 1000 MILLIGRAM, QD
     Route: 048
     Dates: start: 2022
  10. LISINOPRIL [Concomitant]
     Active Substance: LISINOPRIL
     Indication: Hypertension
     Dosage: 20 MILLIGRAM, QD
     Route: 048
     Dates: start: 20210211, end: 20220210
  11. FENTANYL [Concomitant]
     Active Substance: FENTANYL
     Indication: Arthralgia
     Dosage: 75 MICROGRAM, QD (25 UG, TID)
     Route: 058
     Dates: start: 20220218, end: 20220227
  12. FENTANYL [Concomitant]
     Active Substance: FENTANYL
     Dosage: 37.5 MICROGRAM, QD (12.5 UG, TID)
     Route: 058
     Dates: start: 20220207, end: 20220217
  13. FENTANYL [Concomitant]
     Active Substance: FENTANYL
     Dosage: 112.5 MICROGRAM, QD (37.5 UG, TID)
     Route: 058
     Dates: start: 20220228
  14. FENTANYL [Concomitant]
     Active Substance: FENTANYL
     Dosage: 300 MICROGRAM, QD (100 UG, TID)
     Route: 058
     Dates: start: 20220421
  15. AMLODIPINE [Concomitant]
     Active Substance: AMLODIPINE BESYLATE
     Indication: Hypertension
     Dosage: 10 MILLIGRAM, QD
     Route: 048
     Dates: start: 20210305, end: 20220210
  16. ACYCLOVIR [Concomitant]
     Active Substance: ACYCLOVIR
     Indication: Infection prophylaxis
     Dosage: 400 MILLIGRAM, QD
     Route: 048
     Dates: start: 20220127
  17. CALCIFEDIOL [Concomitant]
     Active Substance: CALCIFEDIOL
     Indication: Osteoporosis
     Dosage: 0.27 MICROGRAM, MONTHLY
     Route: 048
     Dates: start: 2022
  18. ASPIRIN [Concomitant]
     Active Substance: ASPIRIN
     Indication: Thrombosis prophylaxis
     Dosage: 100 MILLIGRAM, QD
     Route: 048
     Dates: start: 2021, end: 20220126
  19. FOLIC ACID [Concomitant]
     Active Substance: FOLIC ACID
     Indication: Prophylaxis
     Dosage: 5 MILLIGRAM, QD
     Route: 048
     Dates: start: 2022
  20. HYDROCHLOROTHIAZIDE [Concomitant]
     Active Substance: HYDROCHLOROTHIAZIDE
     Indication: Oedema peripheral
     Dosage: 25 MILLIGRAM, QD
     Route: 048
     Dates: start: 20220228
  21. ACETAMINOPHEN [Concomitant]
     Active Substance: ACETAMINOPHEN
     Indication: Arthralgia
     Dosage: 1 GRAM, PRN
     Route: 048
     Dates: start: 2022
  22. ALPRAZOLAM [Concomitant]
     Active Substance: ALPRAZOLAM
     Indication: Mixed anxiety and depressive disorder
     Dosage: 2 MILLIGRAM, QD (0.5 MG, QID)
     Route: 048
     Dates: start: 2022
  23. LAMIVUDINE [Concomitant]
     Active Substance: LAMIVUDINE
     Indication: Prophylaxis
     Dosage: 100 MILLIGRAM, QD
     Route: 048
     Dates: start: 20210127
  24. BIO K 20 POTASSIUM [Concomitant]
     Indication: Hypokalaemia
     Dosage: 1 DOSAGE FORM
     Route: 065
     Dates: start: 20220310
  25. ENOXAPARIN [Concomitant]
     Active Substance: ENOXAPARIN
     Indication: Thrombosis prophylaxis
     Dosage: 40 MILLIGRAM, QD
     Route: 048
     Dates: start: 20220127
  26. SIMVASTATIN [Concomitant]
     Active Substance: SIMVASTATIN
     Indication: Dyslipidaemia
     Dosage: 20 MILLIGRAM, QD
     Route: 048
     Dates: start: 202111
  27. OMEPRAZOLE [Concomitant]
     Active Substance: OMEPRAZOLE
     Indication: Prophylaxis against gastrointestinal ulcer
     Dosage: 20 MILLIGRAM, QD
     Route: 048
     Dates: start: 2020
  28. ACETAMINOPHEN\TRAMADOL [Concomitant]
     Active Substance: ACETAMINOPHEN\TRAMADOL
     Indication: Back pain
     Dosage: 37.5/325 MG TID
     Route: 048
     Dates: start: 20220421
  29. FEBUXOSTAT [Concomitant]
     Active Substance: FEBUXOSTAT
     Indication: Hyperuricaemia
     Dosage: 80 MILLIGRAM, QD
     Route: 048
     Dates: start: 20220428
  30. MAGNESIUM [Concomitant]
     Active Substance: MAGNESIUM
     Indication: Hyperuricaemia
     Dosage: 53 MILLIGRAM, QD
     Route: 048
     Dates: start: 20220428
  31. BORTEZOMIB [Concomitant]
     Active Substance: BORTEZOMIB
     Indication: Plasma cell myeloma
     Dosage: 1.3 MILLIGRAM/SQ. METER ((1,4,8,11 OF 21 DAY CYCLE)
     Route: 058
  32. MASTICAL D [Concomitant]
     Indication: Hypokalaemia
     Dosage: 1500 MILLIGRAM, QD
     Route: 048

REACTIONS (1)
  - Acute kidney injury [Recovered/Resolved with Sequelae]

NARRATIVE: CASE EVENT DATE: 20220425
